FAERS Safety Report 24927577 (Version 1)
Quarter: 2025Q1

REPORT INFORMATION
  Report Type: Report from Study
  Country: US (occurrence: US)
  Receive Date: 20250205
  Receipt Date: 20250205
  Transmission Date: 20250409
  Serious: Yes (Death)
  Sender: UCB
  Company Number: US-UCBSA-2025006325

PATIENT
  Age: 89 Year
  Sex: Male

DRUGS (1)
  1. LACOSAMIDE [Suspect]
     Active Substance: LACOSAMIDE
     Indication: Focal dyscognitive seizures
     Dosage: 50MG 1 TAB AM, 2 TAB PM, 2X/DAY (BID)
     Dates: end: 20250110

REACTIONS (2)
  - Brain neoplasm [Fatal]
  - Incorrect dose administered [Unknown]

NARRATIVE: CASE EVENT DATE: 20250110
